FAERS Safety Report 4303670-1 (Version None)
Quarter: 2004Q1

REPORT INFORMATION
  Report Type: 
  Country: None (occurrence: None)
  Receive Date: 20040223
  Receipt Date: 20040206
  Transmission Date: 20041129
  Serious: Yes (Hospitalization, Other)
  Sender: FDA-Public Use
  Company Number: 701289

PATIENT
  Age: 57 Year
  Sex: Male

DRUGS (1)
  1. AMEVIVE [Suspect]
     Indication: PSORIASIS
     Dosage: 7.5 MG QW IV
     Route: 042
     Dates: start: 20030930, end: 20031029

REACTIONS (7)
  - EOSINOPHILIC PNEUMONIA [None]
  - IMMUNOSUPPRESSION [None]
  - INTERSTITIAL LUNG DISEASE [None]
  - MONOCYTE COUNT DECREASED [None]
  - PULMONARY FIBROSIS [None]
  - RED CELL DISTRIBUTION WIDTH INCREASED [None]
  - RESPIRATORY FAILURE [None]
